FAERS Safety Report 21099442 (Version 5)
Quarter: 2023Q2

REPORT INFORMATION
  Report Type: Spontaneous
  Country: CA (occurrence: CA)
  Receive Date: 20220719
  Receipt Date: 20230410
  Transmission Date: 20230721
  Serious: Yes (Other)
  Sender: FDA-Public Use
  Company Number: CA-PFIZER INC-202101341128

PATIENT
  Age: 60 Year
  Sex: Female
  Weight: 83.1 kg

DRUGS (5)
  1. SUTENT [Suspect]
     Active Substance: SUNITINIB MALATE
     Indication: Metastatic renal cell carcinoma
     Dosage: 12.5 MG, CYCLIC (1X/DAY, FOR 14 DAYS THEN OFF FOR 7 DAYS)
     Dates: start: 20211004
  2. SUTENT [Suspect]
     Active Substance: SUNITINIB MALATE
     Dosage: 12.5 MG, CYCLIC (1X/DAY, FOR 14 DAYS THEN OFF FOR 7 DAYS)
     Dates: end: 202110
  3. SUTENT [Suspect]
     Active Substance: SUNITINIB MALATE
     Dosage: 12.5 MG, CYCLIC (1X/DAY, FOR 14 DAYS THEN OFF FOR 7 DAYS)
     Dates: end: 20220228
  4. SUTENT [Suspect]
     Active Substance: SUNITINIB MALATE
     Dosage: 25 MG, DAILY FOR 14 DAYS, THEN OFF FOR 7 DAYS
  5. SUTENT [Suspect]
     Active Substance: SUNITINIB MALATE
     Dosage: 25 MG, DAILY
     Dates: start: 20230311

REACTIONS (2)
  - Liver injury [Unknown]
  - Off label use [Unknown]

NARRATIVE: CASE EVENT DATE: 20211004
